FAERS Safety Report 11145891 (Version 4)
Quarter: 2015Q4

REPORT INFORMATION
  Report Type: Spontaneous
  Country: AR (occurrence: AR)
  Receive Date: 20150528
  Receipt Date: 20151109
  Transmission Date: 20160304
  Serious: Yes (Other)
  Sender: FDA-Public Use
  Company Number: CHPA2015AR006582

PATIENT
  Age: 73 Year
  Sex: Female

DRUGS (1)
  1. NICOTINELL [Suspect]
     Active Substance: NICOTINE
     Indication: SMOKING CESSATION THERAPY
     Dosage: 10 DF, DAILY (2 UNITS NOT PROVIDED)
     Route: 048
     Dates: start: 1992

REACTIONS (10)
  - Wrong technique in product usage process [Unknown]
  - Feeling hot [Not Recovered/Not Resolved]
  - Sinusitis [Unknown]
  - Cough [Unknown]
  - Feeling abnormal [Unknown]
  - Feeling of despair [Not Recovered/Not Resolved]
  - Nervousness [Not Recovered/Not Resolved]
  - Burning sensation [Unknown]
  - Gastritis [Recovered/Resolved]
  - Dependence [Not Recovered/Not Resolved]

NARRATIVE: CASE EVENT DATE: 1992
